FAERS Safety Report 24896074 (Version 1)
Quarter: 2025Q1

REPORT INFORMATION
  Report Type: Spontaneous
  Country: GB (occurrence: GB)
  Receive Date: 20250128
  Receipt Date: 20250128
  Transmission Date: 20250409
  Serious: Yes (Other)
  Sender: MYLAN
  Company Number: None

PATIENT
  Sex: Female

DRUGS (1)
  1. DIMETHYL FUMARATE [Suspect]
     Active Substance: DIMETHYL FUMARATE
     Indication: Product used for unknown indication
     Dosage: 240 MILLIGRAM, BID (240MG TWICE A DAY)
     Route: 065

REACTIONS (2)
  - Odynophagia [Not Recovered/Not Resolved]
  - Burn oesophageal [Not Recovered/Not Resolved]
